FAERS Safety Report 10308945 (Version 2)
Quarter: 2014Q3

REPORT INFORMATION
  Report Type: Spontaneous
  Country: US (occurrence: None)
  Receive Date: 20140714
  Receipt Date: 20140725
  Transmission Date: 20150326
  Serious: Yes (Death)
  Sender: FDA-Public Use
  Company Number: UNT-2014-003410

PATIENT
  Age: 67 Year
  Sex: Female
  Weight: 112.9 kg

DRUGS (3)
  1. VELETRI (EPOPROSTENOL SODIUM) [Concomitant]
     Active Substance: EPOPROSTENOL SODIUM
  2. OPSUMIT [Concomitant]
     Active Substance: MACITENTAN
  3. TYVASO [Suspect]
     Active Substance: TREPROSTINIL
     Indication: PULMONARY ARTERIAL HYPERTENSION
     Route: 055
     Dates: start: 201304

REACTIONS (1)
  - Death [None]

NARRATIVE: CASE EVENT DATE: 20140628
